FAERS Safety Report 8264623-4 (Version None)
Quarter: 2012Q2

REPORT INFORMATION
  Report Type: 
  Country: None (occurrence: None)
  Receive Date: 20120404
  Receipt Date: 20120319
  Transmission Date: 20120825
  Serious: Yes (Death, Life-Threatening)
  Sender: FDA-Public Use
  Company Number: 2012S1000079

PATIENT
  Age: 66 Year
  Sex: Male

DRUGS (9)
  1. VASOPRESSIN INJECTION [Concomitant]
  2. TAZOBACTAM [Concomitant]
  3. INOMAX [Suspect]
     Indication: PULMONARY HYPERTENSION
     Dosage: 10 PPM;CONT;INH, 5 PPM;CONT;INH, 4 PPM;CONT, 10 PPM;CONT, 20 PPM;CONT,
     Route: 055
     Dates: start: 20120319, end: 20120320
  4. INOMAX [Suspect]
     Indication: PULMONARY HYPERTENSION
     Dosage: 10 PPM;CONT;INH, 5 PPM;CONT;INH, 4 PPM;CONT, 10 PPM;CONT, 20 PPM;CONT,
     Route: 055
     Dates: start: 20120320, end: 20120320
  5. INOMAX [Suspect]
     Indication: PULMONARY HYPERTENSION
     Dosage: 10 PPM;CONT;INH, 5 PPM;CONT;INH, 4 PPM;CONT, 10 PPM;CONT, 20 PPM;CONT,
     Route: 055
     Dates: start: 20120320, end: 20120321
  6. INOMAX [Suspect]
     Indication: PULMONARY HYPERTENSION
     Dosage: 10 PPM;CONT;INH, 5 PPM;CONT;INH, 4 PPM;CONT, 10 PPM;CONT, 20 PPM;CONT,
     Route: 055
     Dates: start: 20120316, end: 20120319
  7. INOMAX [Suspect]
     Indication: PULMONARY HYPERTENSION
     Dosage: 10 PPM;CONT;INH, 5 PPM;CONT;INH, 4 PPM;CONT, 10 PPM;CONT, 20 PPM;CONT,
     Route: 055
     Dates: start: 20120319, end: 20120319
  8. PIPERACILLIN W/ [Concomitant]
  9. VANCOMYCIN [Concomitant]

REACTIONS (7)
  - ATRIAL FIBRILLATION [None]
  - OFF LABEL USE [None]
  - PULSELESS ELECTRICAL ACTIVITY [None]
  - BLOOD PRESSURE DECREASED [None]
  - PULMONARY EMBOLISM [None]
  - DEVICE MALFUNCTION [None]
  - CARDIO-RESPIRATORY ARREST [None]
